FAERS Safety Report 6058628-1 (Version None)
Quarter: 2009Q1

REPORT INFORMATION
  Report Type: 
  Country: None (occurrence: None)
  Receive Date: 20090130
  Receipt Date: 20090120
  Transmission Date: 20090719
  Serious: Yes (Other)
  Sender: FDA-Public Use
  Company Number: GB-PFIZER INC-2009160339

PATIENT

DRUGS (3)
  1. VARENICLINE TARTRATE [Suspect]
     Indication: SMOKING CESSATION THERAPY
     Dosage: 1 MG, 2X/DAY
     Route: 048
     Dates: start: 20080820, end: 20081010
  2. PREDNISOLONE [Concomitant]
     Indication: ASTHMA
     Dosage: 40 MG, 1X/DAY
     Route: 048
     Dates: start: 20080820, end: 20080825
  3. SALAMOL [Concomitant]
     Indication: ASTHMA
     Dosage: UNK
     Route: 055

REACTIONS (5)
  - ANXIETY [None]
  - DEPRESSED MOOD [None]
  - DEPRESSION [None]
  - DISTURBANCE IN ATTENTION [None]
  - IRRITABILITY [None]
